FAERS Safety Report 11914815 (Version 2)
Quarter: 2016Q1

REPORT INFORMATION
  Report Type: Spontaneous
  Country: ME (occurrence: ME)
  Receive Date: 20160113
  Receipt Date: 20160202
  Transmission Date: 20160526
  Serious: Yes (Other)
  Sender: FDA-Public Use
  Company Number: ME-PFIZER INC-2016013650

PATIENT
  Age: 25 Year
  Sex: Female
  Weight: 62 kg

DRUGS (1)
  1. DOSTINEX [Suspect]
     Active Substance: CABERGOLINE
     Dosage: 0.5 MG, 2X/DAY
     Route: 048
     Dates: start: 20151123, end: 20151129

REACTIONS (3)
  - Blood pressure increased [Recovered/Resolved]
  - Vertigo [Recovered/Resolved]
  - Peripheral swelling [Recovered/Resolved]

NARRATIVE: CASE EVENT DATE: 20151123
